FAERS Safety Report 6929591-3 (Version None)
Quarter: 2010Q3

REPORT INFORMATION
  Report Type: 
  Country: None (occurrence: None)
  Receive Date: 20100818
  Receipt Date: 20100730
  Transmission Date: 20110219
  Serious: Yes (Other)
  Sender: FDA-Public Use
  Company Number: US-BAYER-201029841NA

PATIENT
  Sex: Female

DRUGS (3)
  1. MIRENA [Suspect]
     Indication: PRODUCT USED FOR UNKNOWN INDICATION
     Dosage: FREQUENCY CONTINUOUS
     Route: 015
  2. TOPAMAX [Concomitant]
     Indication: CONVULSION
  3. DILANTIN [Concomitant]
     Indication: CONVULSION

REACTIONS (2)
  - CONVULSION [None]
  - PELVIC INFLAMMATORY DISEASE [None]
